FAERS Safety Report 22240914 (Version 1)
Quarter: 2023Q2

REPORT INFORMATION
  Report Type: Spontaneous
  Country: US (occurrence: US)
  Receive Date: 20230421
  Receipt Date: 20230421
  Transmission Date: 20230721
  Serious: No
  Sender: FDA-Public Use
  Company Number: US-GALDERMA-US2023005099

PATIENT

DRUGS (5)
  1. PROACTIV MD ADAPALENE ACNE TREATMENT [Suspect]
     Active Substance: ADAPALENE
     Indication: Acne
     Dosage: 1 DOSAGE FORM, QD, FACE AND THE BODY WASH IN HIS BACK AND CHEST, PEA SIZE
     Route: 061
     Dates: start: 2021
  2. Proactiv MD Ultra Gentle Cleanser [Concomitant]
     Indication: Acne
     Dosage: 1 DOSAGE FORM, BID, FACE AND THE BODY WASH IN HIS BACK AND CHEST, PEA SIZE
     Route: 061
     Dates: start: 2021
  3. Proactiv MD Ultra Hydrating Moisturizer [Concomitant]
     Indication: Acne
     Dosage: 1 DOSAGE FORM, BID, FACE AND THE BODY WASH IN HIS BACK AND CHEST, PEA SIZE
     Route: 061
     Dates: start: 2021
  4. Proactiv Pore Purifying Nose Strip [Concomitant]
     Indication: Acne
     Dosage: 1 DOSAGE FORM, BID, FACE AND THE BODY WASH IN HIS BACK AND CHEST, PEA SIZE
     Route: 061
     Dates: start: 2021
  5. PROACTIV ACNE BODY WASH [Concomitant]
     Active Substance: SALICYLIC ACID
     Indication: Acne
     Dosage: 1 DOSAGE FORM, BID, FACE AND THE BODY WASH IN HIS BACK AND CHEST, PEA SIZE
     Route: 061
     Dates: start: 2021

REACTIONS (1)
  - Drug ineffective [Unknown]
